FAERS Safety Report 9130010 (Version 1)
Quarter: 2013Q1

REPORT INFORMATION
  Report Type: Spontaneous
  Country: GB (occurrence: GB)
  Receive Date: 20130125
  Receipt Date: 20130125
  Transmission Date: 20140127
  Serious: Yes (Hospitalization, Other)
  Sender: FDA-Public Use
  Company Number: GB-TEVA-361910ISR

PATIENT
  Age: 70 Year
  Sex: Male
  Weight: 83 kg

DRUGS (3)
  1. PREDNISOLONE [Suspect]
     Indication: PROSTATE CANCER METASTATIC
     Route: 048
  2. ZYTIGA [Suspect]
     Indication: PROSTATE CANCER METASTATIC
     Dosage: 1000 MILLIGRAM DAILY;
     Route: 048
     Dates: start: 20120725
  3. DECAPEPTYL SR [Concomitant]
     Indication: PROSTATE CANCER METASTATIC
     Dosage: 11-25 MG
     Route: 030
     Dates: start: 20090829

REACTIONS (1)
  - Urinary tract infection [Recovered/Resolved]
